FAERS Safety Report 17535493 (Version 2)
Quarter: 2020Q1

REPORT INFORMATION
  Report Type: Report from Study
  Country: CA (occurrence: CA)
  Receive Date: 20200312
  Receipt Date: 20200331
  Transmission Date: 20200409
  Serious: Yes (Other)
  Sender: FDA-Public Use
  Company Number: CA-NALPROPION PHARMACEUTICALS INC.-2019-008858

PATIENT

DRUGS (8)
  1. NEXIUM [Concomitant]
     Active Substance: ESOMEPRAZOLE MAGNESIUM
     Indication: GASTROOESOPHAGEAL REFLUX DISEASE
     Dosage: DAILY
     Route: 048
  2. CONTRAVE [Suspect]
     Active Substance: BUPROPION HYDROCHLORIDE\NALTREXONE HYDROCHLORIDE
     Dosage: START DATE: APPROXIMATELY 12/JAN/2020, ONE TABLET IN THE MORNING AND 1 TABLET IN EVENING
     Route: 048
     Dates: start: 202001, end: 20200203
  3. CONTRAVE [Suspect]
     Active Substance: BUPROPION HYDROCHLORIDE\NALTREXONE HYDROCHLORIDE
     Indication: WEIGHT CONTROL
     Dosage: ONE TABLET IN THE MORNING
     Route: 048
     Dates: start: 20191015, end: 20191028
  4. PROMETRIUM [Concomitant]
     Active Substance: PROGESTERONE
     Indication: HORMONE THERAPY
     Dosage: DAILY
     Route: 048
  5. CONTRAVE [Suspect]
     Active Substance: BUPROPION HYDROCHLORIDE\NALTREXONE HYDROCHLORIDE
     Dosage: 1 TABLET IN THE MORNING AND 1 IN THE EVENING, END DATE: STOP DATE: APPROXIMATELY 01/JAN/2020
     Route: 048
     Dates: start: 20191029
  6. ESTROGEL [Concomitant]
     Active Substance: ESTRADIOL
     Indication: HORMONE THERAPY
     Dosage: DAILY
  7. CONTRAVE [Suspect]
     Active Substance: BUPROPION HYDROCHLORIDE\NALTREXONE HYDROCHLORIDE
     Dosage: START DATE: APPROXIMATELY 02/JAN/2020, 1 TABLET IN THE MORNING, END DATE: APPROXIMATELY 11/JAN/2020
     Route: 048
     Dates: start: 202001, end: 202001
  8. IMOVANE [Concomitant]
     Active Substance: ZOPICLONE
     Indication: INSOMNIA
     Dosage: AT BEDTIME
     Route: 048

REACTIONS (9)
  - Sinusitis [Recovering/Resolving]
  - Hypertension [Recovering/Resolving]
  - Dry mouth [Not Recovered/Not Resolved]
  - Constipation [Unknown]
  - Headache [Recovering/Resolving]
  - Somnolence [Unknown]
  - Muscular weakness [Recovered/Resolved]
  - Abdominal discomfort [Unknown]
  - Malaise [Unknown]

NARRATIVE: CASE EVENT DATE: 2019
